FAERS Safety Report 21335471 (Version 1)
Quarter: 2022Q3

REPORT INFORMATION
  Report Type: Spontaneous
  Country: JP (occurrence: JP)
  Receive Date: 20220915
  Receipt Date: 20220915
  Transmission Date: 20221027
  Serious: Yes (Death, Other)
  Sender: FDA-Public Use
  Company Number: JP-CELGENE-JPN-20211107796

PATIENT
  Age: 79 Year
  Sex: Male
  Weight: 53.4 kg

DRUGS (7)
  1. VIDAZA [Suspect]
     Active Substance: AZACITIDINE
     Indication: Myelodysplastic syndrome
     Dosage: 130 MILLIGRAM
     Route: 041
     Dates: start: 20210824, end: 2021
  2. VIDAZA [Suspect]
     Active Substance: AZACITIDINE
     Dosage: 65 MILLIGRAM
     Route: 041
     Dates: start: 20211004, end: 20211009
  3. VIDAZA [Suspect]
     Active Substance: AZACITIDINE
     Dosage: 40 MILLIGRAM
     Route: 041
     Dates: start: 20211129, end: 20211204
  4. VIDAZA [Suspect]
     Active Substance: AZACITIDINE
     Dosage: 24 HOURS
     Route: 042
     Dates: start: 20210824, end: 20210830
  5. VIDAZA [Suspect]
     Active Substance: AZACITIDINE
     Dosage: 24 HRS
     Route: 042
     Dates: start: 20211004, end: 20211010
  6. VIDAZA [Suspect]
     Active Substance: AZACITIDINE
     Dosage: 24 HRS
     Route: 042
     Dates: start: 20220228, end: 20220304
  7. VIDAZA [Suspect]
     Active Substance: AZACITIDINE
     Route: 042
     Dates: start: 20211129, end: 20211205

REACTIONS (2)
  - Transformation to acute myeloid leukaemia [Fatal]
  - Myelosuppression [Recovered/Resolved]

NARRATIVE: CASE EVENT DATE: 20210101
